FAERS Safety Report 7526431-9 (Version None)
Quarter: 2011Q2

REPORT INFORMATION
  Report Type: 
  Country: None (occurrence: None)
  Receive Date: 20110606
  Receipt Date: 20110601
  Transmission Date: 20111010
  Serious: No
  Sender: FDA-Public Use
  Company Number: US-PFIZER INC-2011086700

PATIENT
  Sex: Male

DRUGS (2)
  1. PLAVIX [Concomitant]
     Indication: CORONARY ARTERY BYPASS
     Dosage: UNK
  2. LIPITOR [Suspect]
     Indication: CORONARY ARTERY BYPASS
     Dosage: UNK
     Route: 048
     Dates: start: 20110301

REACTIONS (2)
  - ARTHRALGIA [None]
  - FATIGUE [None]
